FAERS Safety Report 12667097 (Version 2)
Quarter: 2016Q4

REPORT INFORMATION
  Report Type: Spontaneous
  Country: US (occurrence: US)
  Receive Date: 20160819
  Receipt Date: 20161019
  Transmission Date: 20170207
  Serious: No
  Sender: FDA-Public Use
  Company Number: US-JNJFOC-20160712665

PATIENT
  Sex: Male
  Weight: 56.7 kg

DRUGS (6)
  1. PRINIVIL [Concomitant]
     Active Substance: LISINOPRIL
     Indication: CARDIAC DISORDER
     Route: 065
     Dates: start: 2016
  2. ZYTIGA [Suspect]
     Active Substance: ABIRATERONE ACETATE
     Indication: PROSTATE CANCER
     Route: 048
     Dates: start: 2016, end: 2016
  3. ZYTIGA [Suspect]
     Active Substance: ABIRATERONE ACETATE
     Indication: PROSTATE CANCER
     Route: 048
     Dates: start: 201602, end: 2016
  4. ZYTIGA [Suspect]
     Active Substance: ABIRATERONE ACETATE
     Indication: PROSTATE CANCER
     Route: 048
     Dates: start: 2016, end: 2016
  5. PREDNISONE. [Concomitant]
     Active Substance: PREDNISONE
     Indication: PROSTATE CANCER
     Route: 048
     Dates: start: 201602
  6. ZYTIGA [Suspect]
     Active Substance: ABIRATERONE ACETATE
     Indication: PROSTATE CANCER
     Route: 048
     Dates: start: 2016, end: 2016

REACTIONS (4)
  - Hypertension [Unknown]
  - Incorrect dose administered [Not Recovered/Not Resolved]
  - Product size issue [Unknown]
  - Wrong technique in product usage process [Not Recovered/Not Resolved]
